FAERS Safety Report 9765563 (Version 1)
Quarter: 2013Q4

REPORT INFORMATION
  Report Type: Spontaneous
  Country: US (occurrence: US)
  Receive Date: 20131217
  Receipt Date: 20131217
  Transmission Date: 20140711
  Serious: No
  Sender: FDA-Public Use
  Company Number: US-GLAXOSMITHKLINE-A1007899A

PATIENT
  Age: 63 Year
  Sex: Male
  Weight: 84.5 kg

DRUGS (11)
  1. VOTRIENT [Suspect]
     Indication: PRODUCT USED FOR UNKNOWN INDICATION
     Dosage: 200MG SEE DOSAGE TEXT
     Route: 048
  2. FUROSEMIDE [Concomitant]
  3. PRAVASTATIN [Concomitant]
  4. VITAMIN D [Concomitant]
  5. NIFEDIPINE [Concomitant]
  6. GLIPIZIDE [Concomitant]
  7. PERCOCET [Concomitant]
  8. CALCIUM 500 [Concomitant]
  9. XGEVA [Concomitant]
  10. LOSARTAN POTASSIUM [Concomitant]
  11. COZAAR [Concomitant]

REACTIONS (3)
  - Constipation [Unknown]
  - Change of bowel habit [Unknown]
  - Hypertension [Unknown]
